FAERS Safety Report 6381571-5 (Version None)
Quarter: 2009Q3

REPORT INFORMATION
  Report Type: 
  Country: None (occurrence: None)
  Receive Date: 20090925
  Receipt Date: 20090909
  Transmission Date: 20100115
  Serious: Yes (Other)
  Sender: FDA-Public Use
  Company Number: 003008

PATIENT
  Sex: Female
  Weight: 78 kg

DRUGS (8)
  1. PEGAPTANIB SODIUM; PLACEBO (CODE NOT BROKEN) UNKNOWN [Suspect]
     Indication: DIABETIC RETINAL OEDEMA
     Dosage: 0.3MG, CYCLIC
     Dates: start: 20080108, end: 20081231
  2. INSULIN (INSULIN) [Concomitant]
  3. METFORMIN HCL [Concomitant]
  4. MULTIVITAMINS (ASCORBIC ACID, ERGOCALCIFEROL, FOLIC ACID, NICOTINAMIDE [Concomitant]
  5. MULTIVITAMINS (RIBOFLAVIN, THIAMINE HYDROCHLORIDE) [Concomitant]
  6. ENALAPRIL MALEATE [Concomitant]
  7. CALCIUM CARBONATE [Concomitant]
  8. TROPICAMIDE [Concomitant]

REACTIONS (1)
  - CORONARY ARTERY DISEASE [None]
